FAERS Safety Report 9501709 (Version 3)
Quarter: 2013Q4

REPORT INFORMATION
  Report Type: Spontaneous
  Country: US (occurrence: None)
  Receive Date: 20130107
  Receipt Date: 20131226
  Transmission Date: 20140711
  Serious: Yes (Hospitalization, Other)
  Sender: FDA-Public Use
  Company Number: PHEH2012US022604

PATIENT
  Age: 55 Year
  Sex: Female
  Weight: 46.7 kg

DRUGS (8)
  1. GILENYA (FINGOLIMOD) CAPSULE [Suspect]
     Indication: MULTIPLE SCLEROSIS
     Route: 048
     Dates: start: 20110208, end: 20121126
  2. VANCOMYCIN (VANCOMYCIN) [Concomitant]
  3. METRONIDAZOLE (METRONIDAZOLE) [Concomitant]
  4. CIPROFLOXACIN (CIPROFLOXACIN) [Concomitant]
  5. AMOXCLAV (AMOXICILLIN, CLAVULANIC ACID) [Concomitant]
  6. TRAMADOL (TRAMADOL) [Concomitant]
  7. CEFDINIR (CEFDINIR) [Concomitant]
  8. BACLOFEN (BACLOFEN) [Concomitant]

REACTIONS (6)
  - Urinary tract infection [None]
  - Clostridial infection [None]
  - Sinusitis [None]
  - Weight decreased [None]
  - Diarrhoea [None]
  - Headache [None]
